FAERS Safety Report 10021198 (Version 2)
Quarter: 2014Q2

REPORT INFORMATION
  Report Type: Spontaneous
  Country: DE (occurrence: None)
  Receive Date: 20140313
  Receipt Date: 20140609
  Transmission Date: 20141212
  Serious: Yes (Hospitalization, Other)
  Sender: FDA-Public Use
  Company Number: VAL_02909_2014

PATIENT
  Age: 61 Year
  Sex: Male
  Weight: 74 kg

DRUGS (9)
  1. METOPROLOL [Suspect]
     Indication: HYPERTENSION
     Route: 048
     Dates: start: 20051006
  2. DOXAZOSIN [Suspect]
     Indication: HYPERTENSION
     Dosage: (0.5 MG, DF ORAL)
     Dates: start: 20111104
  3. RAD001ADE34T (CODE NOT BROKEN) [Suspect]
     Indication: HEART TRANSPLANT
     Dosage: (DOUBLE BLINDED)
     Dates: start: 20040818
  4. TELMISARTAN [Suspect]
     Indication: HYPERTENSION
     Dosage: (DF ORAL)
     Dates: start: 20051006
  5. CYCLOSPORIN A [Concomitant]
  6. PREDNISOLONE [Concomitant]
  7. ALLOPURINOL [Concomitant]
  8. NITRENDIPINE [Concomitant]
  9. FLUVASTATIN [Concomitant]

REACTIONS (2)
  - Vertigo [None]
  - Nausea [None]
